FAERS Safety Report 9535787 (Version 5)
Quarter: 2015Q4

REPORT INFORMATION
  Report Type: Spontaneous
  Country: CA (occurrence: CA)
  Receive Date: 20130919
  Receipt Date: 20151204
  Transmission Date: 20160305
  Serious: Yes (Other)
  Sender: FDA-Public Use
  Company Number: CA-ROCHE-1277215

PATIENT
  Age: 52 Year
  Sex: Female

DRUGS (7)
  1. ALVESCO [Concomitant]
     Active Substance: CICLESONIDE
  2. SINGULAIR [Concomitant]
     Active Substance: MONTELUKAST SODIUM
  3. SYMBICORT [Concomitant]
     Active Substance: BUDESONIDE\FORMOTEROL FUMARATE DIHYDRATE
  4. ADVAIR HFA [Concomitant]
     Active Substance: FLUTICASONE PROPIONATE\SALMETEROL XINAFOATE
  5. XOLAIR [Suspect]
     Active Substance: OMALIZUMAB
     Indication: ASTHMA
     Route: 058
     Dates: start: 20130712
  6. XOLAIR [Suspect]
     Active Substance: OMALIZUMAB
     Route: 065
     Dates: start: 20131101
  7. PREDNISONE. [Concomitant]
     Active Substance: PREDNISONE

REACTIONS (12)
  - Nausea [Recovered/Resolved]
  - Dizziness [Unknown]
  - Malaise [Unknown]
  - Hiatus hernia [Unknown]
  - Heart rate increased [Unknown]
  - Asthenia [Unknown]
  - Weight increased [Unknown]
  - Asthma [Unknown]
  - Vomiting [Recovered/Resolved]
  - Headache [Recovered/Resolved]
  - Blood pressure diastolic increased [Unknown]
  - Hypotension [Unknown]

NARRATIVE: CASE EVENT DATE: 20130712
